FAERS Safety Report 13843166 (Version 1)
Quarter: 2017Q3

REPORT INFORMATION
  Report Type: Spontaneous
  Country: US (occurrence: US)
  Receive Date: 20170808
  Receipt Date: 20170808
  Transmission Date: 20171127
  Serious: Yes (Life-Threatening)
  Sender: FDA-Public Use
  Company Number: None

PATIENT
  Age: 64 Year
  Sex: Female
  Weight: 94.43 kg

DRUGS (2)
  1. L-THYROXINE [Suspect]
     Active Substance: LEVOTHYROXINE
     Indication: HYPOTHYROIDISM
     Route: 048
     Dates: start: 201609, end: 201707
  2. LEVOTHYROXINE 75 MCG, 50MCG [Suspect]
     Active Substance: LEVOTHYROXINE SODIUM
     Indication: HYPOTHYROIDISM
     Dosage: 50MCG/75MCG PO
     Route: 048
     Dates: start: 201601, end: 201609

REACTIONS (2)
  - Pharyngeal oedema [None]
  - Headache [None]

NARRATIVE: CASE EVENT DATE: 20161213
